FAERS Safety Report 23430315 (Version 1)
Quarter: 2024Q1

REPORT INFORMATION
  Report Type: Spontaneous
  Country: US (occurrence: US)
  Receive Date: 20240123
  Receipt Date: 20240123
  Transmission Date: 20240409
  Serious: Yes (Hospitalization, Other)
  Sender: FDA-Public Use
  Company Number: CID000000000043908

PATIENT
  Age: 76 Year

DRUGS (1)
  1. AUSTEDO [Suspect]
     Active Substance: DEUTETRABENAZINE
     Indication: Huntington^s disease
     Route: 050

REACTIONS (7)
  - PO2 decreased [Unknown]
  - Product use issue [Unknown]
  - Cough [Unknown]
  - Product use issue [Unknown]
  - Living in residential institution [Not Recovered/Not Resolved]
  - Hospice care [Unknown]
  - Wrong technique in product usage process [Unknown]

NARRATIVE: CASE EVENT DATE: 20230102
